FAERS Safety Report 11405529 (Version 2)
Quarter: 2015Q3

REPORT INFORMATION
  Report Type: Spontaneous
  Country: US (occurrence: US)
  Receive Date: 20150821
  Receipt Date: 20150923
  Transmission Date: 20151125
  Serious: No
  Sender: FDA-Public Use
  Company Number: US-MERZ NORTH AMERICA, INC.-15MRZ-00441

PATIENT
  Age: 8 Year
  Sex: Female
  Weight: 17.7 kg

DRUGS (1)
  1. CUVPOSA [Suspect]
     Active Substance: GLYCOPYRROLATE
     Indication: SALIVARY HYPERSECRETION
     Dosage: 1.5 ML THREE TIMES DAILY VIA G TUBE
     Dates: start: 20150814, end: 20150817

REACTIONS (2)
  - Agitation [Recovered/Resolved]
  - Adverse drug reaction [Recovered/Resolved]

NARRATIVE: CASE EVENT DATE: 201508
